FAERS Safety Report 8128243-4 (Version None)
Quarter: 2011Q4

REPORT INFORMATION
  Report Type: 
  Country: None (occurrence: None)
  Receive Date: 20111227
  Receipt Date: 20110906
  Transmission Date: 20120403
  Serious: No
  Sender: FDA-Public Use
  Company Number: PHHY2011US59633

PATIENT
  Age: 62 Year
  Sex: Female
  Weight: 78.9 kg

DRUGS (6)
  1. ALEVE (NAPROXEN SODIUM) TABLET [Concomitant]
  2. COQ10 (UBIDECARENONE) CAPSULE [Concomitant]
  3. PRILOSEC (OMEPRAZOLE) CAPSULE [Concomitant]
  4. CALCIUM CARBONATE [Concomitant]
  5. VITAMIN D (ERGOCALCIFEROL) CAPSULE [Concomitant]
  6. GILENYA [Suspect]
     Indication: MULTIPLE SCLEROSIS
     Dosage: 0.5 MG, QD, ORAL
     Route: 048
     Dates: start: 20110623

REACTIONS (4)
  - SENSATION OF HEAVINESS [None]
  - VISUAL IMPAIRMENT [None]
  - MUSCULOSKELETAL STIFFNESS [None]
  - FATIGUE [None]
